FAERS Safety Report 16299485 (Version 2)
Quarter: 2023Q2

REPORT INFORMATION
  Report Type: Spontaneous
  Country: US (occurrence: US)
  Receive Date: 20190510
  Receipt Date: 20230523
  Transmission Date: 20230722
  Serious: Yes (Other)
  Sender: FDA-Public Use
  Company Number: US-BAYER-2019-092309

PATIENT
  Sex: Male

DRUGS (18)
  1. MAGNEVIST [Suspect]
     Active Substance: GADOPENTETATE DIMEGLUMINE
     Indication: Magnetic resonance imaging
     Route: 042
  2. MAGNEVIST [Suspect]
     Active Substance: GADOPENTETATE DIMEGLUMINE
     Indication: Angiogram
  3. MAGNEVIST [Suspect]
     Active Substance: GADOPENTETATE DIMEGLUMINE
     Indication: Computerised tomogram
  4. EOVIST [Suspect]
     Active Substance: GADOXETATE DISODIUM
     Indication: Magnetic resonance imaging
     Dosage: UNK
     Route: 042
  5. EOVIST [Suspect]
     Active Substance: GADOXETATE DISODIUM
     Indication: Angiogram
  6. EOVIST [Suspect]
     Active Substance: GADOXETATE DISODIUM
     Indication: Computerised tomogram
  7. GADOLINIUM [Suspect]
     Active Substance: GADOLINIUM
     Indication: Magnetic resonance imaging
     Route: 042
  8. GADOLINIUM [Suspect]
     Active Substance: GADOLINIUM
     Indication: Angiogram
  9. GADOLINIUM [Suspect]
     Active Substance: GADOLINIUM
     Indication: Computerised tomogram
  10. OMNISCAN [Suspect]
     Active Substance: GADODIAMIDE
     Indication: Magnetic resonance imaging
     Route: 042
  11. OMNISCAN [Suspect]
     Active Substance: GADODIAMIDE
     Indication: Angiogram
  12. OMNISCAN [Suspect]
     Active Substance: GADODIAMIDE
     Indication: Computerised tomogram
  13. MULTIHANCE [Suspect]
     Active Substance: GADOBENATE DIMEGLUMINE
     Indication: Magnetic resonance imaging
     Route: 042
  14. MULTIHANCE [Suspect]
     Active Substance: GADOBENATE DIMEGLUMINE
     Indication: Angiogram
  15. MULTIHANCE [Suspect]
     Active Substance: GADOBENATE DIMEGLUMINE
     Indication: Computerised tomogram
  16. OPTIMARK [Suspect]
     Active Substance: GADOVERSETAMIDE
     Indication: Magnetic resonance imaging
     Route: 042
  17. OPTIMARK [Suspect]
     Active Substance: GADOVERSETAMIDE
     Indication: Angiogram
  18. OPTIMARK [Suspect]
     Active Substance: GADOVERSETAMIDE
     Indication: Computerised tomogram

REACTIONS (23)
  - Gadolinium deposition disease [None]
  - Mental impairment [None]
  - Contrast media deposition [None]
  - Mobility decreased [None]
  - Pain [None]
  - Burning sensation [None]
  - Confusional state [None]
  - Asthenia [None]
  - Fatigue [None]
  - Inflammation [None]
  - Hypoaesthesia [None]
  - Paraesthesia [None]
  - Arthralgia [None]
  - Emotional distress [None]
  - Injury [None]
  - Pain [None]
  - Muscle spasms [None]
  - Anhedonia [None]
  - Mass [None]
  - Rash [None]
  - Off label use [Unknown]
  - Mental status changes [Unknown]
  - Inflammation [Unknown]
